FAERS Safety Report 17672959 (Version 2)
Quarter: 2020Q2

REPORT INFORMATION
  Report Type: Spontaneous
  Country: IT (occurrence: IT)
  Receive Date: 20200415
  Receipt Date: 20200617
  Transmission Date: 20200713
  Serious: Yes (Death, Hospitalization, Other)
  Sender: FDA-Public Use
  Company Number: NVSC2020IT099533

PATIENT
  Age: 74 Year
  Sex: Male

DRUGS (2)
  1. FILGRASTIM [Suspect]
     Active Substance: FILGRASTIM
     Indication: BONE MARROW CONDITIONING REGIMEN
     Dosage: UNK
     Route: 065
  2. FILGRASTIM [Suspect]
     Active Substance: FILGRASTIM
     Indication: APLASTIC ANAEMIA
     Dosage: UNK
     Route: 065
     Dates: start: 2019

REACTIONS (9)
  - Death [Fatal]
  - Pyrexia [Fatal]
  - Neutropenia [Fatal]
  - Off label use [Fatal]
  - General physical health deterioration [Fatal]
  - Condition aggravated [Unknown]
  - Drug ineffective for unapproved indication [Fatal]
  - Aplastic anaemia [Unknown]
  - Product use in unapproved indication [Unknown]

NARRATIVE: CASE EVENT DATE: 2019
